FAERS Safety Report 7439388-6 (Version None)
Quarter: 2011Q2

REPORT INFORMATION
  Report Type: 
  Country: None (occurrence: None)
  Receive Date: 20110427
  Receipt Date: 20110418
  Transmission Date: 20111010
  Serious: Yes (Hospitalization, Other)
  Sender: FDA-Public Use
  Company Number: CA-TEVA-277618USA

PATIENT
  Age: 59 Year
  Sex: Female

DRUGS (6)
  1. COPAXONE [Suspect]
     Route: 058
  2. LOSARTAN POTASSIUM [Suspect]
     Route: 048
  3. PREGABALIN [Concomitant]
  4. ALBUTEROL SULFATE AUTOHALER [Concomitant]
  5. DIPHENHYDRAMINE [Concomitant]
  6. PHENYTOIN [Concomitant]

REACTIONS (6)
  - HAEMORRHAGE [None]
  - HYPOTENSION [None]
  - HAEMOGLOBIN DECREASED [None]
  - BLADDER OPERATION [None]
  - CARDIAC ARREST [None]
  - BLADDER DISORDER [None]
